FAERS Safety Report 9742952 (Version 1)
Quarter: 2013Q4

REPORT INFORMATION
  Report Type: Spontaneous
  Country: US (occurrence: US)
  Receive Date: 20131210
  Receipt Date: 20131210
  Transmission Date: 20140711
  Serious: No
  Sender: FDA-Public Use
  Company Number: US-TEVA-422836USA

PATIENT
  Age: 3 Year
  Sex: Female

DRUGS (1)
  1. BUDESONIDE [Suspect]
     Dosage: 0.25MG/2ML

REACTIONS (2)
  - Headache [Unknown]
  - Abdominal pain upper [Unknown]
